FAERS Safety Report 5809191-9 (Version None)
Quarter: 2008Q3

REPORT INFORMATION
  Report Type: 
  Country: None (occurrence: None)
  Receive Date: 20080714
  Receipt Date: 20080702
  Transmission Date: 20090109
  Serious: Yes (Hospitalization, Other)
  Sender: FDA-Public Use
  Company Number: AU-PFIZER INC-2008055681

PATIENT
  Sex: Male

DRUGS (10)
  1. CHANTIX [Suspect]
  2. ALLOPURINOL [Concomitant]
  3. CLOPIDOGREL [Concomitant]
  4. SIMVASTATIN [Concomitant]
  5. FAMOTIDINE [Concomitant]
  6. ACETYLSALICYLIC ACID SRT [Concomitant]
  7. SPIRIVA [Concomitant]
  8. PERINDOPRIL ERBUMINE [Concomitant]
  9. FUROSEMIDE [Concomitant]
  10. MOBIC [Concomitant]

REACTIONS (2)
  - HEART RATE INCREASED [None]
  - VENTRICULAR TACHYCARDIA [None]
